FAERS Safety Report 6538971-X (Version None)
Quarter: 2010Q1

REPORT INFORMATION
  Report Type: 
  Country: None (occurrence: None)
  Receive Date: 20100112
  Receipt Date: 20100104
  Transmission Date: 20100710
  Serious: Yes (Hospitalization)
  Sender: FDA-Public Use
  Company Number: 2009-04231

PATIENT
  Age: 59 Year
  Sex: Female
  Weight: 94 kg

DRUGS (12)
  1. VELCADE [Suspect]
     Indication: MULTIPLE MYELOMA
     Dosage: 2.6 MG, CYCLIC, INTRAVENOUS
     Route: 042
     Dates: start: 20090727, end: 20091001
  2. ALLOPURINOL [Concomitant]
  3. ACYCLOVIR [Concomitant]
  4. OMEPRAZOLE [Concomitant]
  5. INFUMORPH [Concomitant]
  6. ORAMORPH SR [Concomitant]
  7. METOCLOPRAMIDE [Concomitant]
  8. CITALOPRAM HYDROBROMIDE [Concomitant]
  9. LEVOTHYROXINE SODIUM [Concomitant]
  10. ADCAL D3 (CALCIUM CARBONATE, COLECALCIFEROL) [Concomitant]
  11. LORON (CLODRONATE DISODIUM) [Concomitant]
  12. MOVICOL /01053601/ (MACROGOL, POTASSIUM CHLORIDE, SODIUM BICARBONATE, [Concomitant]

REACTIONS (4)
  - DRUG INEFFECTIVE [None]
  - MALIGNANT NEOPLASM PROGRESSION [None]
  - MULTIPLE MYELOMA [None]
  - PAIN [None]
